FAERS Safety Report 24651661 (Version 1)
Quarter: 2024Q4

REPORT INFORMATION
  Report Type: Spontaneous
  Country: ES (occurrence: ES)
  Receive Date: 20241122
  Receipt Date: 20241122
  Transmission Date: 20250115
  Serious: Yes (Other)
  Sender: CSL BEHRING
  Company Number: ES-TAKEDA-2024TUS107543

PATIENT
  Age: 24 Year
  Sex: Female

DRUGS (2)
  1. HUMAN IMMUNOGLOBULIN G [Suspect]
     Active Substance: HUMAN IMMUNOGLOBULIN G
     Indication: Immunodeficiency common variable
     Dosage: UNK
     Route: 058
     Dates: start: 2016
  2. HYALURONIC ACID [Suspect]
     Active Substance: HYALURONIC ACID

REACTIONS (3)
  - Injection site necrosis [Recovered/Resolved]
  - Injection site ulcer [Recovered/Resolved]
  - Skin reaction [Unknown]

NARRATIVE: CASE EVENT DATE: 20190101
